FAERS Safety Report 15580036 (Version 1)
Quarter: 2018Q4

REPORT INFORMATION
  Report Type: Spontaneous
  Country: US (occurrence: US)
  Receive Date: 20181102
  Receipt Date: 20181102
  Transmission Date: 20190205
  Serious: No
  Sender: FDA-Public Use
  Company Number: None

PATIENT
  Age: 21 Year
  Sex: Female
  Weight: 60.75 kg

DRUGS (1)
  1. DULOXETINE DR 30 MG CAPSULES, MFG SOLCO GENERIC FOR CYMBALTA [Suspect]
     Active Substance: DULOXETINE
     Indication: MAJOR DEPRESSION
     Dosage: ?          QUANTITY:30 CAPSULE(S);?
     Route: 048
     Dates: start: 20170901, end: 20181024

REACTIONS (10)
  - Decreased appetite [None]
  - Pyrexia [None]
  - Paraesthesia [None]
  - Drug withdrawal syndrome [None]
  - Photophobia [None]
  - Cold sweat [None]
  - Chills [None]
  - Pain [None]
  - Diarrhoea [None]
  - Feeling of despair [None]

NARRATIVE: CASE EVENT DATE: 20181031
